FAERS Safety Report 10067591 (Version 1)
Quarter: 2014Q2

REPORT INFORMATION
  Report Type: Spontaneous
  Country: US (occurrence: None)
  Receive Date: 20140408
  Receipt Date: 20140408
  Transmission Date: 20141212
  Serious: Yes (Hospitalization)
  Sender: FDA-Public Use
  Company Number: None

PATIENT
  Age: 61 Year
  Sex: Female
  Weight: 54.1 kg

DRUGS (10)
  1. RUXOLITINIB [Suspect]
     Indication: BREAST CANCER
     Dates: start: 20140204
  2. PACLITAXEL [Suspect]
     Indication: BREAST CANCER
     Route: 048
     Dates: start: 20140204
  3. EMLA(LIDOCAINE 2.5% +PRILOCAINE 2.5%) [Concomitant]
  4. OMEPRAZOLE [Concomitant]
  5. OXYCODONE [Concomitant]
  6. PAROXETINE [Concomitant]
  7. SYNTHROID(LEVOTHYROXINE SODIUM) [Concomitant]
  8. VITAMIN B6(PYRIDOXINE) [Concomitant]
  9. CALCIUM + (500 ELEM. CA)(CALCIUM CARBONATE) [Concomitant]
  10. COMPAZINE(PROCHLORPERAZINE MALEATE) [Concomitant]

REACTIONS (9)
  - Palpitations [None]
  - Anxiety [None]
  - Dizziness [None]
  - Rectal haemorrhage [None]
  - Epistaxis [None]
  - Hypovolaemia [None]
  - Tachycardia [None]
  - Hypotension [None]
  - Dehydration [None]
